FAERS Safety Report 8793602 (Version 1)
Quarter: 2012Q4

REPORT INFORMATION
  Report Type: Report from Study
  Country: PE (occurrence: PE)
  Receive Date: 20120918
  Receipt Date: 20120918
  Transmission Date: 20130627
  Serious: Yes (Hospitalization)
  Sender: FDA-Public Use
  Company Number: PHHO2012PE012829

PATIENT
  Age: 70 Year
  Sex: Male
  Weight: 67.5 kg

DRUGS (6)
  1. BLINDED ALISKIREN [Suspect]
     Indication: CARDIAC FAILURE
     Dosage: Cod not broken
     Route: 048
     Dates: start: 20110914, end: 20120826
  2. BLINDED ENALAPRIL [Suspect]
     Indication: CARDIAC FAILURE
     Dosage: Cod not broken
     Route: 048
     Dates: start: 20110914, end: 20120826
  3. BLINDED NO TREATMENT RECEIVED [Suspect]
     Indication: CARDIAC FAILURE
     Dosage: Cod not broken
     Route: 048
     Dates: start: 20110914, end: 20120826
  4. DIGOXIN [Concomitant]
     Indication: ATRIAL FIBRILLATION
     Dosage: 0.25 mg, QD
     Dates: start: 20110727
  5. FUROSEMIDE [Concomitant]
     Indication: CARDIAC FAILURE CONGESTIVE
     Dosage: 40 mg, BID
     Dates: start: 20110727
  6. SORBIDE [Concomitant]
     Indication: ANGINA UNSTABLE
     Dosage: 10 mg, BID
     Dates: start: 20120402

REACTIONS (1)
  - Atrial fibrillation [Recovering/Resolving]
